FAERS Safety Report 4568196-9 (Version None)
Quarter: 2005Q1

REPORT INFORMATION
  Report Type: 
  Country: None (occurrence: None)
  Receive Date: 20050202
  Receipt Date: 20050125
  Transmission Date: 20050727
  Serious: Yes (Disabling)
  Sender: FDA-Public Use
  Company Number: NO-MERCK-0501NOR00035

PATIENT
  Age: 42 Year
  Sex: Female

DRUGS (5)
  1. HYZAAR [Suspect]
     Indication: HYPERTENSION
     Route: 048
     Dates: start: 20041101, end: 20041201
  2. SIMVASTATIN [Concomitant]
     Route: 048
  3. IMUREL [Concomitant]
     Route: 048
  4. PREDNISOLONE [Concomitant]
     Route: 048
  5. ZOLOFT [Concomitant]
     Route: 048

REACTIONS (4)
  - FACE OEDEMA [None]
  - FEELING ABNORMAL [None]
  - PRURITUS [None]
  - SYSTEMIC LUPUS ERYTHEMATOSUS [None]
